FAERS Safety Report 18436441 (Version 1)
Quarter: 2020Q4

REPORT INFORMATION
  Report Type: Report from Study
  Country: US (occurrence: US)
  Receive Date: 20201028
  Receipt Date: 20201028
  Transmission Date: 20210114
  Serious: Yes (Hospitalization, Other)
  Sender: FDA-Public Use
  Company Number: US-TEVA-2020-US-1842502

PATIENT
  Age: 76 Year
  Sex: Female

DRUGS (3)
  1. UNSPECIFIED LEVODOPA-BASED THERAPY [Concomitant]
     Active Substance: LEVODOPA
  2. WARFARIN [Suspect]
     Active Substance: WARFARIN
     Route: 065
     Dates: start: 2020, end: 202009
  3. GOCOVRI [Suspect]
     Active Substance: AMANTADINE
     Indication: DYSKINESIA
     Dosage: 137 MILLIGRAM DAILY; FORM OF ADMIN: EXTENDED-RELEASE CAPSULES
     Dates: start: 20180524

REACTIONS (2)
  - Intestinal haemorrhage [Recovered/Resolved]
  - Medical device implantation [Unknown]

NARRATIVE: CASE EVENT DATE: 202008
